FAERS Safety Report 20036400 (Version 1)
Quarter: 2021Q4

REPORT INFORMATION
  Report Type: Spontaneous
  Country: FR (occurrence: FR)
  Receive Date: 20211105
  Receipt Date: 20211105
  Transmission Date: 20220303
  Serious: Yes (Other)
  Sender: FDA-Public Use
  Company Number: None

PATIENT
  Age: 66 Year
  Sex: Male

DRUGS (2)
  1. RIFAMPIN [Suspect]
     Active Substance: RIFAMPIN
     Indication: Intervertebral discitis
     Dosage: 1200 MG, QD
     Route: 048
     Dates: start: 20210730, end: 202110
  2. LEVOFLOXACIN [Suspect]
     Active Substance: LEVOFLOXACIN
     Indication: Intervertebral discitis
     Dosage: 1000 MG, QD
     Route: 048
     Dates: start: 20210717, end: 202110

REACTIONS (1)
  - Polyneuropathy [Not Recovered/Not Resolved]

NARRATIVE: CASE EVENT DATE: 20210901
